FAERS Safety Report 15144848 (Version 6)
Quarter: 2021Q4

REPORT INFORMATION
  Report Type: Spontaneous
  Country: GR (occurrence: GR)
  Receive Date: 20180713
  Receipt Date: 20211214
  Transmission Date: 20220303
  Serious: Yes (Death)
  Sender: FDA-Public Use
  Company Number: GR-BAYER-2018-063893

PATIENT
  Age: 68 Year
  Sex: Male

DRUGS (4)
  1. VANCOMYCIN [Suspect]
     Active Substance: VANCOMYCIN
     Indication: Clostridium difficile colitis
     Dosage: UNK
     Route: 048
  2. MOXIFLOXACIN [Suspect]
     Active Substance: MOXIFLOXACIN
     Indication: Product used for unknown indication
     Dosage: UNK
     Route: 065
  3. CEFTRIAXONE [Suspect]
     Active Substance: CEFTRIAXONE
     Indication: Product used for unknown indication
     Dosage: UNK
     Route: 065
  4. FIDAXOMICIN [Suspect]
     Active Substance: FIDAXOMICIN
     Indication: Product used for unknown indication
     Dosage: UNK
     Route: 065

REACTIONS (6)
  - Death [Fatal]
  - White blood cell count increased [Fatal]
  - Septic shock [Fatal]
  - Clostridium difficile colitis [Fatal]
  - Diarrhoea [Fatal]
  - Haemodynamic instability [Unknown]
